FAERS Safety Report 6371398-2 (Version None)
Quarter: 2009Q3

REPORT INFORMATION
  Report Type: 
  Country: None (occurrence: None)
  Receive Date: 20090923
  Receipt Date: 20070717
  Transmission Date: 20100115
  Serious: Yes (Other)
  Sender: FDA-Public Use
  Company Number: US-ASTRAZENECA-2007UW06075

PATIENT
  Age: 37 Year
  Sex: Male

DRUGS (8)
  1. SEROQUEL [Suspect]
     Indication: BIPOLAR DISORDER
     Route: 048
     Dates: start: 19970101, end: 19970101
  2. SEROQUEL [Suspect]
     Route: 048
     Dates: start: 20000101, end: 20000101
  3. SEROQUEL [Suspect]
     Route: 048
  4. GLUCOPHAGE [Concomitant]
  5. ALTACE [Concomitant]
  6. PRANDIN [Concomitant]
  7. DEPAKOTE [Concomitant]
  8. ESKSLITH [Concomitant]

REACTIONS (3)
  - DIABETES MELLITUS INADEQUATE CONTROL [None]
  - DIABETIC KETOACIDOSIS [None]
  - TYPE 2 DIABETES MELLITUS [None]
